FAERS Safety Report 11324788 (Version 2)
Quarter: 2015Q3

REPORT INFORMATION
  Report Type: Spontaneous
  Country: US (occurrence: US)
  Receive Date: 20150730
  Receipt Date: 20150904
  Transmission Date: 20151125
  Serious: Yes (Hospitalization, Other)
  Sender: FDA-Public Use
  Company Number: US-JNJFOC-20150721861

PATIENT
  Age: 76 Year
  Sex: Male

DRUGS (14)
  1. OMEPRAZOLE. [Concomitant]
     Active Substance: OMEPRAZOLE
  2. SPIRIVA [Concomitant]
     Active Substance: TIOTROPIUM BROMIDE MONOHYDRATE
  3. IMBRUVICA [Suspect]
     Active Substance: IBRUTINIB
     Indication: CHRONIC LYMPHOCYTIC LEUKAEMIA
     Route: 048
     Dates: start: 201502, end: 201503
  4. FUROSEMIDE. [Concomitant]
     Active Substance: FUROSEMIDE
  5. ALLOPURINOL. [Concomitant]
     Active Substance: ALLOPURINOL
  6. GLUCOSAMINE [Concomitant]
     Active Substance: GLUCOSAMINE
  7. IMBRUVICA [Suspect]
     Active Substance: IBRUTINIB
     Indication: CHRONIC LYMPHOCYTIC LEUKAEMIA
     Route: 048
     Dates: start: 20140925, end: 201410
  8. IMBRUVICA [Suspect]
     Active Substance: IBRUTINIB
     Indication: CHRONIC LYMPHOCYTIC LEUKAEMIA
     Route: 048
     Dates: start: 201503, end: 20150715
  9. MOXIFLOXACIN. [Concomitant]
     Active Substance: MOXIFLOXACIN
  10. PREDNISOLONE. [Concomitant]
     Active Substance: PREDNISOLONE
  11. FLOMAX [Concomitant]
     Active Substance: TAMSULOSIN HYDROCHLORIDE
  12. DOXAZOSIN [Concomitant]
     Active Substance: DOXAZOSIN\DOXAZOSIN MESYLATE
  13. SILDENAFIL. [Concomitant]
     Active Substance: SILDENAFIL
  14. ALBUTEROL. [Concomitant]
     Active Substance: ALBUTEROL

REACTIONS (7)
  - Nocardiosis [Unknown]
  - Richter^s syndrome [Unknown]
  - Cardiac failure [Recovering/Resolving]
  - Haemolysis [Unknown]
  - Bronchopulmonary aspergillosis [Unknown]
  - Thrombocytopenia [Not Recovered/Not Resolved]
  - Anaemia [Recovering/Resolving]

NARRATIVE: CASE EVENT DATE: 201410
